FAERS Safety Report 5607874-7 (Version None)
Quarter: 2008Q1

REPORT INFORMATION
  Report Type: 
  Country: None (occurrence: None)
  Receive Date: 20080130
  Receipt Date: 20071129
  Transmission Date: 20080703
  Serious: Yes (Other)
  Sender: FDA-Public Use
  Company Number: SK-BAYER-200717696GPV

PATIENT
  Age: 51 Year

DRUGS (2)
  1. SORAFENIB [Suspect]
     Indication: METASTATIC RENAL CELL CARCINOMA
     Route: 048
  2. SUNITINIB [Concomitant]
     Indication: METASTATIC RENAL CELL CARCINOMA
     Route: 065

REACTIONS (2)
  - MYOCARDIAL ISCHAEMIA [None]
  - ORAL PAIN [None]
